FAERS Safety Report 4768522-1 (Version None)
Quarter: 2005Q3

REPORT INFORMATION
  Report Type: 
  Country: None (occurrence: None)
  Receive Date: 20050914
  Receipt Date: 20050909
  Transmission Date: 20060218
  Serious: Yes (Death, Life-Threatening, Hospitalization)
  Sender: FDA-Public Use
  Company Number: PHFR2005GB03015

PATIENT
  Age: 57 Year
  Sex: Female

DRUGS (2)
  1. NSAID'S [Concomitant]
     Route: 065
  2. VOLTAROL [Suspect]
     Indication: SCIATICA
     Dosage: UNK
     Route: 048
     Dates: start: 20050801, end: 20050815

REACTIONS (2)
  - ACUTE RESPIRATORY DISTRESS SYNDROME [None]
  - GASTRIC ULCER PERFORATION [None]
